FAERS Safety Report 5527175-5 (Version None)
Quarter: 2007Q4

REPORT INFORMATION
  Report Type: 
  Country: None (occurrence: None)
  Receive Date: 20071121
  Receipt Date: 20071113
  Transmission Date: 20080405
  Serious: Yes (Hospitalization)
  Sender: FDA-Public Use
  Company Number: US021712

PATIENT
  Age: 2 Year
  Sex: Female

DRUGS (1)
  1. PROVIGIL [Suspect]
     Dosage: 100 MG ONCE ORAL
     Route: 048
     Dates: start: 20030805, end: 20030805

REACTIONS (3)
  - ACCIDENTAL DRUG INTAKE BY CHILD [None]
  - ATAXIA [None]
  - ILL-DEFINED DISORDER [None]
